FAERS Safety Report 9636573 (Version 3)
Quarter: 2013Q4

REPORT INFORMATION
  Report Type: Report from Study
  Country: DE (occurrence: DE)
  Receive Date: 20131021
  Receipt Date: 20131107
  Transmission Date: 20140711
  Serious: Yes (Other)
  Sender: FDA-Public Use
  Company Number: DE-ABBVIE-13P-062-1121300-00

PATIENT
  Age: 55 Year
  Sex: Male

DRUGS (5)
  1. TRENANTONE [Suspect]
     Indication: PROSTATE CANCER
     Route: 058
     Dates: start: 20130107, end: 20130411
  2. TRENANTONE [Suspect]
     Route: 058
     Dates: start: 20130806
  3. ENANTONE [Suspect]
     Indication: PROSTATE CANCER
     Dosage: MONTHLY
     Dates: start: 20130711, end: 20130711
  4. ALL OTHER THERAPEUTIC PRODUCTS [Concomitant]
     Indication: OSTEOPOROSIS
  5. ALL OTHER THERAPEUTIC PRODUCTS [Concomitant]
     Indication: PROSTATE CANCER

REACTIONS (4)
  - Urinary retention [Unknown]
  - Metastases to bone [Unknown]
  - Haemoglobin decreased [Recovering/Resolving]
  - Hydronephrosis [Unknown]
